FAERS Safety Report 8232000-8 (Version None)
Quarter: 2012Q1

REPORT INFORMATION
  Report Type: 
  Country: None (occurrence: None)
  Receive Date: 20120323
  Receipt Date: 20120314
  Transmission Date: 20120608
  Serious: Yes (Other)
  Sender: FDA-Public Use
  Company Number: US-SANOFI-AVENTIS-2011SA066780

PATIENT
  Age: 68 Year
  Sex: Male
  Weight: 77.27 kg

DRUGS (1)
  1. MULTAQ [Suspect]
     Indication: ATRIAL FIBRILLATION
     Route: 048
     Dates: start: 20090815

REACTIONS (9)
  - EYE INFLAMMATION [None]
  - ATRIAL FIBRILLATION [None]
  - PHOTOSENSITIVITY REACTION [None]
  - HEADACHE [None]
  - ENDODONTIC PROCEDURE [None]
  - FATIGUE [None]
  - PHOTOPHOBIA [None]
  - TOOTH INFECTION [None]
  - POST PROCEDURAL COMPLICATION [None]
